FAERS Safety Report 7990054-8 (Version None)
Quarter: 2011Q4

REPORT INFORMATION
  Report Type: 
  Country: None (occurrence: None)
  Receive Date: 20111219
  Receipt Date: 20110315
  Transmission Date: 20120403
  Serious: No
  Sender: FDA-Public Use
  Company Number: US-ASTRAZENECA-2011SE14489

PATIENT
  Age: 62 Year
  Sex: Female
  Weight: 86.2 kg

DRUGS (6)
  1. ASPIRIN [Concomitant]
  2. CRESTOR [Suspect]
     Indication: LOW DENSITY LIPOPROTEIN INCREASED
     Route: 048
     Dates: start: 20100301
  3. GENERIC ZANTAC [Concomitant]
  4. LEXAPRO [Concomitant]
  5. FISH OIL [Concomitant]
  6. VITAMIN TAB [Concomitant]

REACTIONS (2)
  - MUSCULAR WEAKNESS [None]
  - CHEST DISCOMFORT [None]
